FAERS Safety Report 5318664-7 (Version None)
Quarter: 2007Q2

REPORT INFORMATION
  Report Type: 
  Country: None (occurrence: None)
  Receive Date: 20070508
  Receipt Date: 20070427
  Transmission Date: 20071010
  Serious: Yes (Hospitalization)
  Sender: FDA-Public Use
  Company Number: PHBS2007ES06826

PATIENT
  Age: 71 Year
  Sex: Female

DRUGS (1)
  1. ACLASTA [Suspect]
     Indication: OSTEOPOROSIS
     Dosage: 5MG
     Dates: start: 20070301

REACTIONS (4)
  - DYSPNOEA [None]
  - LEUKOCYTOSIS [None]
  - METABOLIC ACIDOSIS [None]
  - RESPIRATORY FAILURE [None]
